FAERS Safety Report 7940609-1 (Version None)
Quarter: 2011Q4

REPORT INFORMATION
  Report Type: 
  Country: None (occurrence: None)
  Receive Date: 20111114
  Receipt Date: 20101029
  Transmission Date: 20120403
  Serious: Yes (Hospitalization)
  Sender: FDA-Public Use
  Company Number: 2010S1001629

PATIENT
  Age: 83 Year
  Sex: Male
  Weight: 115.6 kg

DRUGS (11)
  1. CUBICIN [Suspect]
     Indication: SKIN INFECTION
     Dosage: 4 MG/KG;Q24H; IV
     Route: 042
     Dates: start: 20101013, end: 20101025
  2. PLAVIX [Concomitant]
  3. ADVAIR DISKUS 100/50 [Concomitant]
  4. TOPROL-XL [Concomitant]
  5. CELEBREX [Concomitant]
  6. MAXZIDE [Concomitant]
  7. METFORMIN HCL [Concomitant]
  8. VICODIN [Concomitant]
  9. SPIRIVA [Concomitant]
  10. ALTACE [Concomitant]
  11. ZYVOX [Concomitant]

REACTIONS (3)
  - HYPERSENSITIVITY [None]
  - RENAL FAILURE ACUTE [None]
  - BLOOD CREATINE PHOSPHOKINASE INCREASED [None]
